FAERS Safety Report 12083920 (Version 1)
Quarter: 2016Q1

REPORT INFORMATION
  Report Type: Spontaneous
  Country: US (occurrence: None)
  Receive Date: 20160216
  Receipt Date: 20160216
  Transmission Date: 20160526
  Serious: Yes (Other)
  Sender: FDA-Public Use
  Company Number: None

PATIENT
  Age: 62 Year
  Sex: Female

DRUGS (1)
  1. CREST 3D WHITE WHITESTRIPS [Suspect]
     Active Substance: HYDROGEN PEROXIDE
     Indication: DENTAL COSMETIC PROCEDURE
     Dosage: 1 STRIP 1 ONLY INTRAORAL
     Route: 048
     Dates: start: 201502

REACTIONS (6)
  - Intentional device misuse [None]
  - Tooth discolouration [None]
  - Gingival discolouration [None]
  - Device failure [None]
  - Tooth loss [None]
  - Dental caries [None]
